FAERS Safety Report 15226627 (Version 1)
Quarter: 2018Q3

REPORT INFORMATION
  Report Type: Spontaneous
  Country: US (occurrence: US)
  Receive Date: 20180801
  Receipt Date: 20180801
  Transmission Date: 20181010
  Serious: No
  Sender: FDA-Public Use
  Company Number: US-SHIRE-US201829094

PATIENT
  Sex: Female
  Weight: 53.97 kg

DRUGS (2)
  1. TYLENOL/00020001/ [Concomitant]
     Indication: PAIN
  2. XIIDRA [Suspect]
     Active Substance: LIFITEGRAST
     Indication: DRY EYE
     Dosage: 1 GTT, 2X/DAY:BID
     Route: 047
     Dates: start: 20180724

REACTIONS (3)
  - Instillation site pain [Unknown]
  - Vision blurred [Unknown]
  - Instillation site reaction [Unknown]
